FAERS Safety Report 4894804-9 (Version None)
Quarter: 2006Q1

REPORT INFORMATION
  Report Type: 
  Country: None (occurrence: None)
  Receive Date: 20060126
  Receipt Date: 20060126
  Transmission Date: 20060701
  Serious: Yes (Death, Hospitalization)
  Sender: FDA-Public Use
  Company Number: None

PATIENT
  Age: 54 Year
  Sex: Male

DRUGS (16)
  1. RITUXIMAB [Suspect]
     Indication: B-CELL LYMPHOMA
     Dosage: 700MG IV  ONCE
     Route: 042
     Dates: start: 20050919, end: 20050919
  2. VINCRISTINE [Suspect]
     Indication: B-CELL LYMPHOMA
     Dosage: 1.8 MG IV BOLUS ONCE
     Route: 040
     Dates: start: 20050919, end: 20050919
  3. TETRACYCLINE HCL [Concomitant]
  4. GATIFLOXACIN [Concomitant]
  5. CASTOR OIL/PERUVIAN BALSAM/TRYPSIN [Concomitant]
  6. ATENOLOL [Concomitant]
  7. INSULIN NOVOLIN  70/30 -NPH/REG- [Concomitant]
  8. LISINOPRIL [Concomitant]
  9. MULTI-VITAMIN [Concomitant]
  10. CITALOPRAM HYDROBROMIDE [Concomitant]
  11. TRAZODONE [Concomitant]
  12. GUAIFENESIN [Concomitant]
  13. PRECISION Q-I-D GLUCOSE TEST STRIP [Concomitant]
  14. OMEPRAZOLE [Concomitant]
  15. GABAPENTIN [Concomitant]
  16. DICLOFENAC [Concomitant]

REACTIONS (5)
  - BACTERIAL SEPSIS [None]
  - BONE MARROW FAILURE [None]
  - FEBRILE NEUTROPENIA [None]
  - MULTI-ORGAN FAILURE [None]
  - PANCYTOPENIA [None]
